FAERS Safety Report 16919306 (Version 1)
Quarter: 2019Q4

REPORT INFORMATION
  Report Type: Spontaneous
  Country: US (occurrence: US)
  Receive Date: 20191015
  Receipt Date: 20191015
  Transmission Date: 20200122
  Serious: Yes (Life-Threatening, Hospitalization)
  Sender: FDA-Public Use
  Company Number: US-MYLANLABS-2019M1097672

PATIENT
  Age: 50 Year
  Sex: Female

DRUGS (4)
  1. HYDROMORPHONE [Concomitant]
     Active Substance: HYDROMORPHONE
     Route: 065
  2. AMITRIPTYLINE [Suspect]
     Active Substance: AMITRIPTYLINE
     Indication: PRODUCT USED FOR UNKNOWN INDICATION
     Route: 065
  3. NALOXONE [Suspect]
     Active Substance: NALOXONE
     Indication: TOXICITY TO VARIOUS AGENTS
     Dosage: RECEIVED TWO TIMES
     Route: 042
  4. FENTANYL. [Concomitant]
     Active Substance: FENTANYL
     Route: 065

REACTIONS (8)
  - Ventricular tachycardia [Recovering/Resolving]
  - Hypotension [Recovering/Resolving]
  - Toxicity to various agents [Recovering/Resolving]
  - Metabolic acidosis [Recovered/Resolved]
  - Coma scale abnormal [Recovering/Resolving]
  - Seizure [Recovering/Resolving]
  - Overdose [Recovering/Resolving]
  - Drug ineffective [Unknown]
